FAERS Safety Report 23827555 (Version 1)
Quarter: 2024Q2

REPORT INFORMATION
  Report Type: Spontaneous
  Country: US (occurrence: None)
  Receive Date: 20240506
  Receipt Date: 20240506
  Transmission Date: 20240715
  Serious: No
  Sender: FDA-Public Use
  Company Number: None

PATIENT
  Age: 76 Year
  Sex: Female

DRUGS (2)
  1. RINVOQ [Suspect]
     Active Substance: UPADACITINIB
     Indication: Rheumatoid arthritis
     Dosage: FREQUENCY : DAILY;?
     Route: 048
     Dates: start: 20240319, end: 20240425
  2. ENBREL [Concomitant]
     Active Substance: BENZYL ALCOHOL\ETANERCEPT
     Dates: start: 20190621, end: 20240317

REACTIONS (9)
  - Chest pain [None]
  - Pain in jaw [None]
  - Aphonia [None]
  - Alopecia [None]
  - Asthenia [None]
  - Dizziness [None]
  - Headache [None]
  - Musculoskeletal chest pain [None]
  - Back pain [None]

NARRATIVE: CASE EVENT DATE: 20240402
